FAERS Safety Report 4734739-5 (Version None)
Quarter: 2005Q3

REPORT INFORMATION
  Report Type: 
  Country: None (occurrence: None)
  Receive Date: 20050804
  Receipt Date: 20050801
  Transmission Date: 20060218
  Serious: Yes (Life-Threatening, Other)
  Sender: FDA-Public Use
  Company Number: BR-GLAXOSMITHKLINE-A0568657A

PATIENT
  Age: 25 Year
  Sex: Male

DRUGS (3)
  1. AEROLIN [Suspect]
     Indication: SUICIDE ATTEMPT
     Dosage: 20TAB SINGLE DOSE
     Route: 048
     Dates: start: 20050624
  2. PREDNISOLONE [Suspect]
     Indication: SUICIDE ATTEMPT
     Dosage: 10TAB SINGLE DOSE
     Route: 048
     Dates: start: 20050624
  3. NIMESULIDE [Suspect]
     Indication: SUICIDE ATTEMPT
     Dosage: 6TAB SINGLE DOSE
     Route: 048
     Dates: start: 20050624

REACTIONS (3)
  - INTENTIONAL MISUSE [None]
  - OVERDOSE [None]
  - SUICIDE ATTEMPT [None]
